FAERS Safety Report 16798530 (Version 2)
Quarter: 2019Q3

REPORT INFORMATION
  Report Type: Spontaneous
  Country: FR (occurrence: FR)
  Receive Date: 20190912
  Receipt Date: 20190925
  Transmission Date: 20191005
  Serious: Yes (Life-Threatening, Hospitalization, Disabling, Other)
  Sender: FDA-Public Use
  Company Number: FR-GILEAD-2019-0427968

PATIENT
  Age: 60 Year
  Sex: Male
  Weight: 107 kg

DRUGS (4)
  1. TEMESTA [ASTEMIZOLE] [Concomitant]
     Indication: INSOMNIA
     Dosage: 1 DOSAGE FORM, UNK
     Route: 048
  2. TRIUMEQ [Concomitant]
     Active Substance: ABACAVIR SULFATE\DOLUTEGRAVIR SODIUM\LAMIVUDINE
     Indication: HIV INFECTION
     Dosage: UNK
     Dates: start: 20190515
  3. EPCLUSA [Suspect]
     Active Substance: SOFOSBUVIR\VELPATASVIR
     Indication: CHRONIC HEPATITIS C
     Dosage: 1 DOSAGE FORM, QD
     Route: 048
     Dates: start: 20190508, end: 20190814
  4. PROPANOLOL [PROPRANOLOL] [Concomitant]
     Active Substance: PROPRANOLOL HYDROCHLORIDE
     Indication: VARICOSE VEIN
     Dosage: 1 DOSAGE FORM, UNK
     Route: 048

REACTIONS (15)
  - Cognitive disorder [Unknown]
  - Confusional state [Unknown]
  - Encephalopathy [Unknown]
  - Bacteraemia [Unknown]
  - Ascites [Unknown]
  - Quadriparesis [Unknown]
  - Coma [Unknown]
  - Encephalitis [Not Recovered/Not Resolved]
  - Upper limb fracture [Not Recovered/Not Resolved]
  - Depressed level of consciousness [Unknown]
  - Status epilepticus [Not Recovered/Not Resolved]
  - Joint dislocation [Not Recovered/Not Resolved]
  - Hallucination, visual [Unknown]
  - Pyramidal tract syndrome [Unknown]
  - Motor dysfunction [Unknown]
